FAERS Safety Report 10642248 (Version 2)
Quarter: 2015Q1

REPORT INFORMATION
  Report Type: Spontaneous
  Country: US (occurrence: US)
  Receive Date: 20141210
  Receipt Date: 20150102
  Transmission Date: 20150720
  Serious: Yes (Other)
  Sender: FDA-Public Use
  Company Number: US-009507513-1412USA004095

PATIENT
  Age: 56 Year

DRUGS (1)
  1. JANUVIA [Suspect]
     Active Substance: SITAGLIPTIN PHOSPHATE
     Dosage: 100 MG, FREQUENCY UNSPECIFIED
     Route: 048

REACTIONS (2)
  - Neoplasm malignant [Unknown]
  - Haematuria [Unknown]
